FAERS Safety Report 10885403 (Version 2)
Quarter: 2015Q2

REPORT INFORMATION
  Report Type: Spontaneous
  Country: US (occurrence: None)
  Receive Date: 20150227
  Receipt Date: 20150401
  Transmission Date: 20150821
  Serious: Yes (Hospitalization)
  Sender: FDA-Public Use
  Company Number: CC400247866

PATIENT
  Age: 40 Year
  Sex: Female
  Weight: 56.25 kg

DRUGS (2)
  1. 0.9% SODIUM CHLORIDE, B. BRAUN MEDICAL INC. [Suspect]
     Active Substance: SODIUM CHLORIDE
     Indication: IMAGING PROCEDURE
     Dosage: 100ML/HR IV INFUSION
     Route: 042
     Dates: start: 20150212
  2. CHLORHEXIDINE (IV SITE SCRUB) [Concomitant]

REACTIONS (6)
  - Chest discomfort [None]
  - Pruritus [None]
  - Rash [None]
  - Infusion related reaction [None]
  - Cough [None]
  - Erythema [None]

NARRATIVE: CASE EVENT DATE: 20150212
